FAERS Safety Report 7496644-3 (Version None)
Quarter: 2011Q2

REPORT INFORMATION
  Report Type: 
  Country: None (occurrence: None)
  Receive Date: 20110523
  Receipt Date: 20110517
  Transmission Date: 20111010
  Serious: Yes (Hospitalization)
  Sender: FDA-Public Use
  Company Number: A0876386A

PATIENT
  Sex: Male

DRUGS (4)
  1. ATENOLOL [Concomitant]
  2. AVANDIA [Suspect]
     Indication: PRODUCT USED FOR UNKNOWN INDICATION
     Dosage: 4MG UNKNOWN
     Route: 048
     Dates: start: 20020101, end: 20070101
  3. TRENTAL [Concomitant]
  4. ASPIRIN [Concomitant]

REACTIONS (8)
  - CHRONIC OBSTRUCTIVE PULMONARY DISEASE [None]
  - SINUS ARRHYTHMIA [None]
  - MYOCARDIAL ISCHAEMIA [None]
  - VENTRICULAR TACHYCARDIA [None]
  - IMPLANTABLE DEFIBRILLATOR INSERTION [None]
  - PALPITATIONS [None]
  - CORONARY ARTERY BYPASS [None]
  - MYOCARDIAL INFARCTION [None]
